FAERS Safety Report 9167824 (Version 1)
Quarter: 2013Q1

REPORT INFORMATION
  Report Type: Spontaneous
  Country: GB (occurrence: None)
  Receive Date: 20130307
  Receipt Date: 20130307
  Transmission Date: 20140127
  Serious: Yes (Other)
  Sender: FDA-Public Use
  Company Number: AUR-APL-2013-01775

PATIENT
  Age: 54 Year
  Sex: Male

DRUGS (3)
  1. RIBAVIRIN [Suspect]
     Indication: HEPATITIS C
     Route: 048
     Dates: start: 20121229
  2. TELAPREVIR (TELAPREVIR) [Suspect]
     Indication: HEPATITIS C
     Dosage: (750 MG, 3 IN 1 D)
     Route: 048
  3. PEGINTERFERON ALFA-2B (PEGINTERFERON ALFA-2B) [Concomitant]

REACTIONS (5)
  - Fatigue [None]
  - Dizziness [None]
  - Dysstasia [None]
  - Frequent bowel movements [None]
  - Pain in extremity [None]
